FAERS Safety Report 26175091 (Version 2)
Quarter: 2025Q4

REPORT INFORMATION
  Report Type: Spontaneous
  Country: US (occurrence: US)
  Receive Date: 20251218
  Receipt Date: 20251226
  Transmission Date: 20260118
  Serious: Yes (Hospitalization)
  Sender: BIOGEN
  Company Number: US-BIOGEN-2093546

PATIENT
  Age: 72 Year
  Sex: Female

DRUGS (2)
  1. SKYCLARYS [Suspect]
     Active Substance: OMAVELOXOLONE
     Indication: Friedreich^s ataxia
     Dates: start: 20241127
  2. JOURNAVX [Concomitant]
     Active Substance: SUZETRIGINE
     Indication: Pain

REACTIONS (3)
  - Hypoaesthesia [Unknown]
  - Neck pain [Unknown]
  - Fine motor skill dysfunction [Unknown]
